FAERS Safety Report 7668942-1 (Version None)
Quarter: 2011Q3

REPORT INFORMATION
  Report Type: 
  Country: None (occurrence: None)
  Receive Date: 20110808
  Receipt Date: 20110801
  Transmission Date: 20111222
  Serious: Yes (Other)
  Sender: FDA-Public Use
  Company Number: US-GLAXOSMITHKLINE-A0939273A

PATIENT
  Age: 54 Year
  Sex: Male

DRUGS (4)
  1. HERB DRUG [Suspect]
     Indication: ASTHENIA
  2. LAMICTAL [Suspect]
     Indication: CONVULSION
     Dosage: 150MG TWICE PER DAY
     Route: 048
     Dates: start: 20090101
  3. COLESTIPOL HYDROCHLORIDE [Concomitant]
  4. ZONEGRAN [Concomitant]
     Dates: start: 20110719

REACTIONS (2)
  - CONVULSION [None]
  - DRUG INTERACTION [None]
